FAERS Safety Report 20323540 (Version 1)
Quarter: 2022Q1

REPORT INFORMATION
  Report Type: Spontaneous
  Country: US (occurrence: None)
  Receive Date: 20220111
  Receipt Date: 20220111
  Transmission Date: 20220423
  Serious: No
  Sender: FDA-Public Use
  Company Number: None

PATIENT
  Age: 83 Year
  Sex: Male
  Weight: 93.89 kg

DRUGS (1)
  1. ISOSORBIDE MONONITRATE [Suspect]
     Active Substance: ISOSORBIDE MONONITRATE
     Dosage: FREQUENCY : DAILY;?
     Route: 048
     Dates: start: 20210519, end: 20210624

REACTIONS (1)
  - Headache [None]

NARRATIVE: CASE EVENT DATE: 20210820
